FAERS Safety Report 15900272 (Version 3)
Quarter: 2019Q3

REPORT INFORMATION
  Report Type: Report from Study
  Country: DE (occurrence: DE)
  Receive Date: 20190201
  Receipt Date: 20190702
  Transmission Date: 20191004
  Serious: Yes (Hospitalization, Other)
  Sender: FDA-Public Use
  Company Number: DE-JNJFOC-20190131015

PATIENT
  Age: 38 Year
  Sex: Male
  Weight: 86.3 kg

DRUGS (1)
  1. USTEKINUMAB [Suspect]
     Active Substance: USTEKINUMAB
     Indication: CROHN^S DISEASE
     Route: 058

REACTIONS (1)
  - Superficial spreading melanoma stage unspecified [Not Recovered/Not Resolved]

NARRATIVE: CASE EVENT DATE: 20190110
